FAERS Safety Report 9235832 (Version 1)
Quarter: 2013Q2

REPORT INFORMATION
  Report Type: Spontaneous
  Country: US (occurrence: None)
  Receive Date: 20130416
  Receipt Date: 20130416
  Transmission Date: 20140414
  Serious: No
  Sender: FDA-Public Use
  Company Number: None

PATIENT
  Age: 57 Year
  Sex: Female

DRUGS (1)
  1. TOPIRAMATE [Suspect]
     Dosage: 1QAM 2 HS, QD, PO
     Route: 048
     Dates: start: 20121212, end: 20130225

REACTIONS (2)
  - Gastrointestinal disorder [None]
  - Vomiting [None]
